FAERS Safety Report 13232998 (Version 1)
Quarter: 2017Q1

REPORT INFORMATION
  Report Type: Spontaneous
  Country: JP (occurrence: JP)
  Receive Date: 20170214
  Receipt Date: 20170214
  Transmission Date: 20170428
  Serious: Yes (Other)
  Sender: FDA-Public Use
  Company Number: JP-BAXTER-2017BAX006154

PATIENT
  Age: 7 Decade
  Sex: Male

DRUGS (1)
  1. ENDOXAN [Suspect]
     Active Substance: CYCLOPHOSPHAMIDE
     Indication: PRODUCT USED FOR UNKNOWN INDICATION
     Route: 048

REACTIONS (1)
  - Cardiac hypertrophy [Not Recovered/Not Resolved]
